FAERS Safety Report 7356425-8 (Version None)
Quarter: 2011Q1

REPORT INFORMATION
  Report Type: 
  Country: None (occurrence: None)
  Receive Date: 20110316
  Receipt Date: 20110309
  Transmission Date: 20110831
  Serious: Yes (Other)
  Sender: FDA-Public Use
  Company Number: US-AMGEN-USASP2011010660

PATIENT
  Age: 83 Year
  Sex: Female

DRUGS (7)
  1. DECADRON [Concomitant]
  2. NPLATE [Suspect]
     Dates: start: 20090804
  3. PREDNISONE TAB [Concomitant]
  4. GLYBURIDE [Concomitant]
  5. INSULIN [Concomitant]
  6. NPLATE [Suspect]
     Indication: IDIOPATHIC THROMBOCYTOPENIC PURPURA
     Dosage: UNK A?G/KG, UNK
     Dates: start: 20090804, end: 20110105
  7. CORTICOSTEROIDS [Concomitant]

REACTIONS (3)
  - NORMOCHROMIC NORMOCYTIC ANAEMIA [None]
  - MANTLE CELL LYMPHOMA [None]
  - LEUKOCYTOSIS [None]
